FAERS Safety Report 24461837 (Version 1)
Quarter: 2024Q4

REPORT INFORMATION
  Report Type: Report from Study
  Country: GB (occurrence: GB)
  Receive Date: 20241018
  Receipt Date: 20241018
  Transmission Date: 20250115
  Serious: No
  Sender: ROCHE
  Company Number: GB-ROCHE-3548253

PATIENT
  Age: 13 Year
  Sex: Female

DRUGS (1)
  1. RITUXIMAB [Suspect]
     Active Substance: RITUXIMAB
     Indication: Prophylaxis against transplant rejection
     Route: 065
     Dates: start: 202211

REACTIONS (1)
  - Enterovirus infection [Recovered/Resolved]

NARRATIVE: CASE EVENT DATE: 20230501
